FAERS Safety Report 21699218 (Version 1)
Quarter: 2022Q4

REPORT INFORMATION
  Report Type: Spontaneous
  Country: JP (occurrence: JP)
  Receive Date: 20221208
  Receipt Date: 20221208
  Transmission Date: 20230113
  Serious: Yes (Death, Hospitalization, Other)
  Sender: FDA-Public Use
  Company Number: JP-BRISTOL-MYERS SQUIBB COMPANY-2022-149671

PATIENT
  Age: 66 Year
  Sex: Male
  Weight: 57 kg

DRUGS (10)
  1. PACLITAXEL [Suspect]
     Active Substance: PACLITAXEL
     Indication: Gastric cancer
     Route: 065
  2. NIVOLUMAB [Suspect]
     Active Substance: NIVOLUMAB
     Indication: Gastric cancer
     Route: 065
     Dates: start: 20220610
  3. RAMUCIRUMAB [Suspect]
     Active Substance: RAMUCIRUMAB
     Indication: Gastric cancer
     Route: 065
  4. MAGNESIUM OXIDE [Concomitant]
     Active Substance: MAGNESIUM OXIDE
     Indication: Prophylaxis
     Route: 048
     Dates: start: 20220610
  5. PROCHLORPERAZINE MALEATE [Concomitant]
     Active Substance: PROCHLORPERAZINE MALEATE
     Indication: Prophylaxis
     Dosage: AS NEEDED. ONGOING
     Route: 048
     Dates: start: 20220610
  6. LOPERAMIDE HYDROCHLORIDE [Concomitant]
     Active Substance: LOPERAMIDE HYDROCHLORIDE
     Indication: Prophylaxis
     Route: 048
     Dates: start: 20220610
  7. MAXACALCITOL [Concomitant]
     Active Substance: MAXACALCITOL
     Indication: Psoriasis
     Dosage: ONGOING. 1 APPLICATION BID
     Dates: start: 20211207
  8. DEXAMETHASONE [Concomitant]
     Active Substance: DEXAMETHASONE
     Indication: Prophylaxis
     Route: 048
     Dates: start: 20220610, end: 20220612
  9. SODIUM GUALENATE MONOHYDRATE [Concomitant]
     Active Substance: SODIUM GUALENATE MONOHYDRATE
     Indication: Prophylaxis
     Dosage: 1 APPLICATION 3 TIMES PER DAY
     Route: 061
     Dates: start: 20220610
  10. BETAMETHASONE BUTYRATE PROPIONATE [Concomitant]
     Active Substance: BETAMETHASONE BUTYRATE PROPIONATE
     Indication: Psoriasis
     Dosage: 1 APPLICATION BID
     Route: 061
     Dates: start: 20211207

REACTIONS (5)
  - Malignant neoplasm progression [Fatal]
  - Febrile neutropenia [Unknown]
  - Bacteraemia [Unknown]
  - Endocarditis [Unknown]
  - Off label use [Unknown]

NARRATIVE: CASE EVENT DATE: 20221125
